FAERS Safety Report 5813976-2 (Version None)
Quarter: 2008Q3

REPORT INFORMATION
  Report Type: 
  Country: None (occurrence: None)
  Receive Date: 20080715
  Receipt Date: 20080630
  Transmission Date: 20090109
  Serious: Yes (Disabling)
  Sender: FDA-Public Use
  Company Number: 430022J08USA

PATIENT
  Age: 67 Year
  Sex: Male
  Weight: 77.1115 kg

DRUGS (3)
  1. NOVANTRONE [Suspect]
     Indication: MULTIPLE SCLEROSIS
     Dosage: 23 NOT REPORTED, 1 IN 3 MONTHS, INTRAVENOUS (NOT OTHERWISE S
     Route: 042
     Dates: start: 20071213, end: 20080313
  2. BACLOFEN [Concomitant]
  3. ARICEPT [Concomitant]

REACTIONS (7)
  - BURNS THIRD DEGREE [None]
  - ERYTHEMA [None]
  - HYPOAESTHESIA [None]
  - INFUSION SITE EXTRAVASATION [None]
  - OEDEMA PERIPHERAL [None]
  - SKIN DISCOLOURATION [None]
  - SKIN GRAFT [None]
